FAERS Safety Report 9019890 (Version 2)
Quarter: 2013Q2

REPORT INFORMATION
  Report Type: Report from Study
  Country: AU (occurrence: AU)
  Receive Date: 20130118
  Receipt Date: 20130604
  Transmission Date: 20140414
  Serious: Yes (Hospitalization)
  Sender: FDA-Public Use
  Company Number: AU-SANOFI-AVENTIS-2013SA001574

PATIENT
  Age: 54 Year
  Sex: Female
  Weight: 73.4 kg

DRUGS (8)
  1. OXALIPLATIN [Suspect]
     Indication: COLORECTAL CANCER METASTATIC
     Dosage: FREQUENCY- 2/52
     Route: 042
     Dates: start: 20121002, end: 20130102
  2. BEVACIZUMAB [Suspect]
     Indication: COLORECTAL CANCER METASTATIC
     Dosage: FREQUENCY- 2/52
     Route: 042
     Dates: start: 20121016
  3. 5-FU [Suspect]
     Indication: COLORECTAL CANCER METASTATIC
     Dosage: FREQUENCY- 2/52
     Route: 040
     Dates: start: 20121002
  4. 5-FU [Suspect]
     Indication: COLORECTAL CANCER METASTATIC
     Dosage: FREQUENCY- 2/52?DOSE- 46/24 INFUSION
     Route: 042
     Dates: start: 20121002, end: 20130102
  5. OLMESARTAN MEDOXOMIL [Concomitant]
     Dosage: 40/12.5 MG
     Dates: start: 20121011
  6. PAROXETINE [Concomitant]
     Dates: start: 20120924
  7. ENOXAPARIN SODIUM [Concomitant]
     Dates: start: 20121122
  8. ESOMEPRAZOLE MAGNESIUM [Concomitant]
     Dates: start: 2002

REACTIONS (1)
  - Angina pectoris [Recovered/Resolved]
